FAERS Safety Report 20961076 (Version 2)
Quarter: 2023Q1

REPORT INFORMATION
  Report Type: Report from Study
  Country: US (occurrence: US)
  Receive Date: 20220615
  Receipt Date: 20230110
  Transmission Date: 20230418
  Serious: No
  Sender: FDA-Public Use
  Company Number: US-KYOWAKIRIN-2022BKK009001

PATIENT

DRUGS (3)
  1. CRYSVITA [Suspect]
     Active Substance: BUROSUMAB-TWZA
     Indication: Hereditary hypophosphataemic rickets
     Dosage: 20 MG, 1X/4 WEEKS
     Route: 058
     Dates: start: 20181204, end: 20210825
  2. CRYSVITA [Suspect]
     Active Substance: BUROSUMAB-TWZA
     Dosage: UNK
     Route: 058
     Dates: start: 20211122
  3. CRYSVITA [Suspect]
     Active Substance: BUROSUMAB-TWZA
     Dosage: 24 MG, EVERY 14 DAYS
     Route: 058

REACTIONS (5)
  - Urinary incontinence [Unknown]
  - Gingival disorder [Unknown]
  - Nipple pain [Recovered/Resolved]
  - Cardiac murmur [Unknown]
  - Off label use [Unknown]
